FAERS Safety Report 9473456 (Version 1)
Quarter: 2013Q3

REPORT INFORMATION
  Report Type: Spontaneous
  Country: US (occurrence: US)
  Receive Date: 20130823
  Receipt Date: 20130823
  Transmission Date: 20140515
  Serious: Yes (Hospitalization)
  Sender: FDA-Public Use
  Company Number: US-BRISTOL-MYERS SQUIBB COMPANY-19010057

PATIENT
  Age: 74 Year
  Sex: Female

DRUGS (1)
  1. SPRYCEL [Suspect]
     Indication: MYELOID LEUKAEMIA
     Dates: start: 20130521, end: 20130606

REACTIONS (1)
  - Dyspnoea [Recovering/Resolving]
